FAERS Safety Report 19022466 (Version 2)
Quarter: 2021Q1

REPORT INFORMATION
  Report Type: Spontaneous
  Country: US (occurrence: US)
  Receive Date: 20210317
  Receipt Date: 20210330
  Transmission Date: 20210420
  Serious: Yes (Other)
  Sender: FDA-Public Use
  Company Number: US-SA-2021SA076979

PATIENT
  Age: 66 Year
  Sex: Male

DRUGS (1)
  1. LANTUS SOLOSTAR [Suspect]
     Active Substance: INSULIN GLARGINE
     Indication: TYPE 1 DIABETES MELLITUS
     Dosage: 5?6 UNITS , QD
     Route: 065
     Dates: start: 2014

REACTIONS (3)
  - Pancreatic carcinoma [Recovered/Resolved]
  - Blood glucose increased [Unknown]
  - Product quality issue [Unknown]
